FAERS Safety Report 6613945-9 (Version None)
Quarter: 2010Q1

REPORT INFORMATION
  Report Type: 
  Country: None (occurrence: None)
  Receive Date: 20100304
  Receipt Date: 20100224
  Transmission Date: 20100710
  Serious: Yes (Death)
  Sender: FDA-Public Use
  Company Number: B0637342A

PATIENT
  Age: 4 Year
  Sex: Male

DRUGS (2)
  1. SERETIDE [Suspect]
     Indication: ASTHMA
     Route: 065
     Dates: start: 20090101
  2. VENTOLIN [Suspect]
     Indication: ASTHMA
     Route: 065
     Dates: start: 20090101

REACTIONS (1)
  - ASTHMA [None]
